FAERS Safety Report 23739528 (Version 1)
Quarter: 2024Q2

REPORT INFORMATION
  Report Type: Spontaneous
  Country: FR (occurrence: FR)
  Receive Date: 20240413
  Receipt Date: 20240413
  Transmission Date: 20240716
  Serious: Yes (Death)
  Sender: FDA-Public Use
  Company Number: FR-AFSSAPS-PO2024000329

PATIENT
  Age: 63 Year
  Sex: Male
  Weight: 75 kg

DRUGS (8)
  1. OXALIPLATIN [Suspect]
     Active Substance: OXALIPLATIN
     Indication: Rectal adenocarcinoma
     Dosage: 145 MILLIGRAM,BIWEEKLY
     Route: 042
     Dates: start: 20240116, end: 20240213
  2. DOXYCYCLINE [Suspect]
     Active Substance: DOXYCYCLINE
     Indication: Acne
     Dosage: 100 MILLIGRAM,NO FURTHER INFORMATION ON DOSAGE
     Route: 048
     Dates: start: 20240214
  3. ONDANSETRON [Suspect]
     Active Substance: ONDANSETRON
     Indication: Chemotherapy side effect prophylaxis
     Dosage: 8 MILLIGRAM, BI WEEKLY
     Route: 042
     Dates: start: 20240116, end: 20240213
  4. METOCLOPRAMIDE [Suspect]
     Active Substance: METOCLOPRAMIDE
     Indication: Chemotherapy side effect prophylaxis
     Dosage: 20 MILLIGRAM, BIWEEKLY
     Route: 042
     Dates: start: 20240116, end: 20240213
  5. POLARAMINE [Suspect]
     Active Substance: DEXCHLORPHENIRAMINE MALEATE
     Indication: Chemotherapy side effect prophylaxis
     Dosage: 5 MILLIGRAM,BIWEEKLY
     Route: 042
     Dates: start: 20240116, end: 20240213
  6. FLUOROURACIL [Suspect]
     Active Substance: FLUOROURACIL
     Indication: Rectal adenocarcinoma
     Dosage: 4100 MILLIGRAM,BIWEEKLY
     Route: 042
     Dates: start: 20240116, end: 20240213
  7. ERBITUX [Suspect]
     Active Substance: CETUXIMAB
     Indication: Rectal adenocarcinoma
     Dosage: 855 MILLIGRAM,BIWEEKLY
     Route: 042
     Dates: start: 20240213, end: 20240213
  8. METHYLPREDNISOLONE [Suspect]
     Active Substance: METHYLPREDNISOLONE
     Indication: Chemotherapy side effect prophylaxis
     Dosage: 60 MILLIGRAM, BIWEEKLY
     Route: 042
     Dates: start: 20240116, end: 20240213

REACTIONS (2)
  - Oesophagitis [Fatal]
  - Duodenitis [Fatal]

NARRATIVE: CASE EVENT DATE: 20240223
